FAERS Safety Report 14713650 (Version 1)
Quarter: 2018Q2

REPORT INFORMATION
  Report Type: Report from Study
  Country: GB (occurrence: GB)
  Receive Date: 20180404
  Receipt Date: 20180404
  Transmission Date: 20180711
  Serious: Yes (Death, Hospitalization)
  Sender: FDA-Public Use
  Company Number: GB-AMGEN-GBRCT2011063045

PATIENT
  Age: 69 Year
  Sex: Male

DRUGS (1)
  1. ETANERCEPT [Suspect]
     Active Substance: ETANERCEPT
     Indication: RHEUMATOID ARTHRITIS
     Dosage: 25 MG, 2X/WEEK
     Route: 065
     Dates: start: 20040213

REACTIONS (4)
  - Pulmonary fibrosis [Fatal]
  - Rheumatoid arthritis [Fatal]
  - Hypertension [Fatal]
  - Aortic aneurysm rupture [Fatal]

NARRATIVE: CASE EVENT DATE: 20111008
